FAERS Safety Report 21967094 (Version 1)
Quarter: 2023Q1

REPORT INFORMATION
  Report Type: Spontaneous
  Country: US (occurrence: None)
  Receive Date: 20230206
  Receipt Date: 20230206
  Transmission Date: 20230417
  Serious: Yes (Disabling)
  Sender: FDA-Public Use
  Company Number: None

PATIENT
  Age: 23 Year
  Sex: Male

DRUGS (1)
  1. FLUOXETINE [Suspect]
     Active Substance: FLUOXETINE HYDROCHLORIDE
     Indication: Anxiety
     Dates: start: 20220202, end: 20220225

REACTIONS (5)
  - Tremor [None]
  - Nervous system disorder [None]
  - Gait disturbance [None]
  - Condition aggravated [None]
  - Fall [None]

NARRATIVE: CASE EVENT DATE: 20220226
